FAERS Safety Report 25662640 (Version 1)
Quarter: 2025Q3

REPORT INFORMATION
  Report Type: Spontaneous
  Country: EU (occurrence: EU)
  Receive Date: 20250811
  Receipt Date: 20250811
  Transmission Date: 20251020
  Serious: Yes (Disabling)
  Sender: TAKEDA
  Company Number: EU-LUNDBECK-DKLU4017848

PATIENT
  Age: 50 Year
  Sex: Female

DRUGS (1)
  1. BRINTELLIX [Suspect]
     Active Substance: VORTIOXETINE HYDROBROMIDE
     Indication: Depression
     Dosage: 5 MILLIGRAM, QD
     Dates: start: 20190201

REACTIONS (4)
  - Dental caries [Unknown]
  - Dry mouth [Unknown]
  - Weight increased [Unknown]
  - Therapeutic response unexpected [Unknown]
